FAERS Safety Report 5705501-1 (Version None)
Quarter: 2008Q2

REPORT INFORMATION
  Report Type: 
  Country: None (occurrence: None)
  Receive Date: 20080411
  Receipt Date: 20071126
  Transmission Date: 20081010
  Serious: Yes (Death)
  Sender: FDA-Public Use
  Company Number: 2007JP005077

PATIENT
  Age: 53 Year
  Sex: Female

DRUGS (2)
  1. PROGRAF [Suspect]
     Indication: RHEUMATOID ARTHRITIS
     Dosage: 3 DF, UID/QD, ORAL
     Route: 048
     Dates: start: 20061205, end: 20061222
  2. SOLU-MEDROL [Suspect]
     Dosage: 500 MG, /D, IV DRIP
     Route: 042
     Dates: start: 20061215, end: 20061217

REACTIONS (1)
  - OPPORTUNISTIC INFECTION [None]
